FAERS Safety Report 4772539-0 (Version None)
Quarter: 2005Q3

REPORT INFORMATION
  Report Type: 
  Country: None (occurrence: None)
  Receive Date: 20050919
  Receipt Date: 20050829
  Transmission Date: 20060218
  Serious: Yes (Other)
  Sender: FDA-Public Use
  Company Number: JP-BRISTOL-MYERS SQUIBB COMPANY-13114533

PATIENT
  Sex: Female

DRUGS (1)
  1. ENDOXAN [Suspect]
     Indication: LUPUS NEPHRITIS

REACTIONS (2)
  - CERVIX CARCINOMA [None]
  - TREATMENT RELATED SECONDARY MALIGNANCY [None]
